FAERS Safety Report 6133175-7 (Version None)
Quarter: 2009Q1

REPORT INFORMATION
  Report Type: 
  Country: None (occurrence: None)
  Receive Date: 20090324
  Receipt Date: 20090324
  Transmission Date: 20090719
  Serious: Yes (Other)
  Sender: FDA-Public Use
  Company Number: None

PATIENT
  Age: 63 Year
  Sex: Male
  Weight: 78.4723 kg

DRUGS (2)
  1. ALDARA [Suspect]
     Indication: BASAL CELL CARCINOMA
     Dosage: 0.25G TWICE PER WEEK TOP ONE TIME 4 TIMES
     Route: 061
     Dates: start: 20090215, end: 20090215
  2. ALDARA [Suspect]
     Indication: BASAL CELL CARCINOMA
     Dosage: 0.25G TWICE PER WEEK TOP ONE TIME 4 TIMES
     Route: 061
     Dates: start: 20090306, end: 20090316

REACTIONS (11)
  - ANOREXIA [None]
  - BACK PAIN [None]
  - CHEST PAIN [None]
  - FATIGUE [None]
  - HEADACHE [None]
  - INFLUENZA LIKE ILLNESS [None]
  - LETHARGY [None]
  - NAUSEA [None]
  - PAIN [None]
  - RECTAL HAEMORRHAGE [None]
  - RENAL PAIN [None]
